FAERS Safety Report 25044650 (Version 1)
Quarter: 2025Q1

REPORT INFORMATION
  Report Type: Spontaneous
  Country: US (occurrence: US)
  Receive Date: 20250306
  Receipt Date: 20250306
  Transmission Date: 20250408
  Serious: No
  Sender: RECORDATI
  Company Number: US-RECORDATI RARE DISEASE INC.-2024006198

PATIENT

DRUGS (23)
  1. ISTURISA [Suspect]
     Active Substance: OSILODROSTAT PHOSPHATE
     Indication: Cushing^s syndrome
     Dosage: 1 MG, QD
     Route: 048
     Dates: start: 20240805, end: 2024
  2. ISTURISA [Suspect]
     Active Substance: OSILODROSTAT PHOSPHATE
     Dosage: 1 MG, QD
     Route: 048
     Dates: start: 2024
  3. ASPIRIN [Concomitant]
     Active Substance: ASPIRIN
     Indication: Product used for unknown indication
     Dosage: 81 MG, QD (LOW DOSE, TABLET DEL)
     Route: 048
     Dates: start: 20220802
  4. COENZYME Q10 [Concomitant]
     Active Substance: DIETARY SUPPLEMENT\UBIDECARENONE
     Indication: Product used for unknown indication
     Dosage: 200 MG, QD (CAPSULE 200 MG)
     Route: 048
     Dates: start: 20220802
  5. MELATONIN [Concomitant]
     Active Substance: MELATONIN
     Indication: Product used for unknown indication
     Dosage: 20 MG, QD (AT BEDTIME, ORAL TABLET CH)
     Route: 048
     Dates: start: 20220802
  6. OMEPRAZOLE [Concomitant]
     Active Substance: OMEPRAZOLE
     Indication: Product used for unknown indication
     Route: 048
     Dates: start: 20220802
  7. VITAMIN C [Concomitant]
     Active Substance: ASCORBIC ACID
     Indication: Product used for unknown indication
     Dosage: 500 MG, QPM:EVERY EVENING (TABLET CHEWABLE 250)
     Route: 048
     Dates: start: 20220802
  8. ELIQUIS [Concomitant]
     Active Substance: APIXABAN
     Indication: Product used for unknown indication
     Dosage: 5 MG, BID (TABLET 5 MG)
     Route: 048
     Dates: start: 20220802
  9. FUROSEMIDE [Concomitant]
     Active Substance: FUROSEMIDE
     Indication: Product used for unknown indication
     Dosage: 10 MG, QD (TABLET 20 MG)
     Route: 048
     Dates: start: 20220802
  10. SENNA [Concomitant]
     Active Substance: SENNOSIDES
     Indication: Product used for unknown indication
     Dosage: 17.2 MG, QD (AT BEDTIME, TABLET 8.6 MG)
     Route: 048
     Dates: start: 20240815
  11. HYDRALAZINE HCL [Concomitant]
     Active Substance: HYDRALAZINE HYDROCHLORIDE
     Indication: Product used for unknown indication
     Dosage: 10 MG, BID (TABLET 10 MG)
     Route: 048
     Dates: start: 20230802
  12. HYDROCHLOROTHIAZIDE [Concomitant]
     Active Substance: HYDROCHLOROTHIAZIDE
     Indication: Product used for unknown indication
     Dosage: 12.5 MG, QD (TABLET 12)
     Route: 048
     Dates: start: 20220802
  13. LOSARTAN POTASSIUM [Concomitant]
     Active Substance: LOSARTAN POTASSIUM
     Indication: Product used for unknown indication
     Dosage: 50 MG, QD (TABLET 50 MG)
     Route: 048
     Dates: start: 20220802
  14. MINERALS\VITAMINS [Concomitant]
     Active Substance: MINERALS\VITAMINS
     Indication: Product used for unknown indication
     Dosage: 1 DOSAGE FORM (1 TABLET), BID
     Route: 048
     Dates: start: 20220802
  15. SPIRONOLACTONE [Concomitant]
     Active Substance: SPIRONOLACTONE
     Indication: Product used for unknown indication
     Dosage: 12.5 MG, EVERY MORNING (TABLET 25 MG)
     Route: 048
     Dates: start: 20230802
  16. TIZANIDINE HYDROCHLORIDE [Concomitant]
     Active Substance: TIZANIDINE HYDROCHLORIDE
     Indication: Product used for unknown indication
     Route: 048
     Dates: start: 20220802
  17. VITAMIN D3 [Concomitant]
     Active Substance: CHOLECALCIFEROL
     Indication: Product used for unknown indication
     Dosage: 1.25 MG, QD (CAPSULE 1.25 MG (50))
     Route: 048
     Dates: start: 20220802
  18. CARVEDILOL [Concomitant]
     Active Substance: CARVEDILOL
     Indication: Product used for unknown indication
     Dosage: 25 MG, BID (TABLET 25 MG)
     Route: 048
     Dates: start: 20240809
  19. VITAMIN B COMPLEX [Concomitant]
     Active Substance: CYANOCOBALAMIN\DEXPANTHENOL\NIACINAMIDE\PYRIDOXINE HYDROCHLORIDE\RIBOFLAVIN 5^-PHOSPHATE SODIUM\THIA
     Indication: Product used for unknown indication
     Dosage: 1 DOSAGE FORM (1 CAPSULE), QD
     Route: 048
     Dates: start: 20240815
  20. Ezfe [Concomitant]
     Indication: Product used for unknown indication
     Dosage: 434.8/200, QD (200 ORAL CAPSULE 434.8/200 FE)
     Route: 048
     Dates: start: 20220802
  21. BIOTIN [Concomitant]
     Active Substance: BIOTIN
     Indication: Product used for unknown indication
     Dosage: 5000 MICROGRAM, EVERY EVENING (TABLET CHEWABLE 1000MCG)
     Route: 048
     Dates: start: 20220802
  22. ACETAMINOPHEN [Concomitant]
     Active Substance: ACETAMINOPHEN
     Indication: Product used for unknown indication
     Route: 048
     Dates: start: 20220802
  23. Beet root [Concomitant]
     Indication: Product used for unknown indication
     Dosage: 500 MG, EVERY EVENING (CAPSULE 500 MG)
     Route: 048
     Dates: start: 20230515

REACTIONS (5)
  - Pain [Unknown]
  - Limb discomfort [Unknown]
  - Muscle spasms [Unknown]
  - Renal artery stent placement [Recovered/Resolved]
  - Off label use [Recovered/Resolved]

NARRATIVE: CASE EVENT DATE: 20240801
